FAERS Safety Report 14585516 (Version 2)
Quarter: 2018Q4

REPORT INFORMATION
  Report Type: Spontaneous
  Country: US (occurrence: US)
  Receive Date: 20180301
  Receipt Date: 20181009
  Transmission Date: 20190204
  Serious: Yes (Other)
  Sender: FDA-Public Use
  Company Number: US-PFIZER INC-2018083278

PATIENT
  Age: 72 Year
  Sex: Female
  Weight: 73 kg

DRUGS (2)
  1. LYRICA [Suspect]
     Active Substance: PREGABALIN
     Indication: PAIN IN EXTREMITY
     Dosage: 75 MG, 2X/DAY (ONE IN THE MORNING AND ONE AT NIGHT)
     Route: 048
     Dates: start: 2018, end: 201809
  2. LYRICA [Suspect]
     Active Substance: PREGABALIN
     Indication: PAIN
     Dosage: 75 MG, 2X/DAY (ONE IN THE MORNING AND ONE AT NIGHT)
     Route: 048
     Dates: end: 201802

REACTIONS (4)
  - Neoplasm malignant [Unknown]
  - Malaise [Unknown]
  - Pain [Not Recovered/Not Resolved]
  - Middle insomnia [Unknown]

NARRATIVE: CASE EVENT DATE: 201802
